FAERS Safety Report 7137236-5 (Version None)
Quarter: 2010Q4

REPORT INFORMATION
  Report Type: 
  Country: None (occurrence: None)
  Receive Date: 20101119
  Receipt Date: 20101115
  Transmission Date: 20110411
  Serious: Yes (Other)
  Sender: FDA-Public Use
  Company Number: TRP_07387_2010

PATIENT

DRUGS (3)
  1. INFERGEN [Suspect]
     Indication: HEPATITIS C
  2. RIBAVARIN [Suspect]
     Indication: HEPATITIS C
     Dosage: ORAL
     Route: 048
     Dates: start: 20090201, end: 20100801
  3. PEGASYS [Suspect]
     Indication: HEPATITIS C
     Dates: start: 20090201, end: 20100801

REACTIONS (2)
  - RETINITIS [None]
  - TREATMENT FAILURE [None]
